FAERS Safety Report 6183820-5 (Version None)
Quarter: 2009Q2

REPORT INFORMATION
  Report Type: 
  Country: None (occurrence: None)
  Receive Date: 20090508
  Receipt Date: 20090503
  Transmission Date: 20091009
  Serious: Yes (Death, Other)
  Sender: FDA-Public Use
  Company Number: SE-AMGEN-US345776

PATIENT
  Sex: Female

DRUGS (6)
  1. ENBREL [Suspect]
     Indication: RHEUMATOID ARTHRITIS
     Route: 058
     Dates: start: 19990427, end: 19991201
  2. FOLACIN [Concomitant]
     Route: 065
  3. IPREN [Concomitant]
     Route: 065
  4. PREDNISOLONE [Concomitant]
     Route: 065
  5. CORTICOSTEROID NOS [Concomitant]
     Route: 065
  6. TROMBYL [Concomitant]
     Route: 065

REACTIONS (5)
  - ANAL ABSCESS [None]
  - CARDIAC FAILURE [None]
  - NON-HODGKIN'S LYMPHOMA [None]
  - PAIN [None]
  - RADIATION INJURY [None]
